FAERS Safety Report 4837963-6 (Version None)
Quarter: 2005Q4

REPORT INFORMATION
  Report Type: 
  Country: None (occurrence: None)
  Receive Date: 20051123
  Receipt Date: 20051110
  Transmission Date: 20060501
  Serious: Yes (Other)
  Sender: FDA-Public Use
  Company Number: 2005152128

PATIENT
  Sex: Male

DRUGS (1)
  1. XALATAN [Suspect]
     Indication: GLAUCOMA
     Dosage: 1 DROP (1 DROP, DAILY), OPHTHALMIC
     Route: 047
     Dates: start: 20021201

REACTIONS (2)
  - BLINDNESS [None]
  - TREATMENT NONCOMPLIANCE [None]
